FAERS Safety Report 4359546-7 (Version None)
Quarter: 2004Q2

REPORT INFORMATION
  Report Type: 
  Country: None (occurrence: None)
  Receive Date: 20040512
  Receipt Date: 20040427
  Transmission Date: 20050107
  Serious: Yes (Death, Other)
  Sender: FDA-Public Use
  Company Number: EWC040438985

PATIENT
  Age: 79 Year
  Sex: Male

DRUGS (13)
  1. ZYPREXA [Suspect]
     Indication: PSYCHOTIC DISORDER
     Dosage: 5 MG DAY
     Dates: start: 20040127
  2. HEMIVERIN (CLOMETHIAZOLE EDISILATE) [Concomitant]
  3. REMERON [Concomitant]
  4. MOVICOL [Concomitant]
  5. FELODIPINE [Concomitant]
  6. PROPAVAN (PROPIOMAZINE MALEATE) [Concomitant]
  7. THERALEN (ALIMEMAZINE TARTRATE) [Concomitant]
  8. NITROGLYCERIN  NM PHARMA (GLYCERYL TRINITRATE) [Concomitant]
  9. TROMBYL (ACETYLSALICYLIC ACID) [Concomitant]
  10. PROSCAR [Concomitant]
  11. IMDUR [Concomitant]
  12. ZOPICLONE [Concomitant]
  13. METFORMIN HCL [Concomitant]

REACTIONS (9)
  - ABDOMINAL DISTENSION [None]
  - ATRIAL FIBRILLATION [None]
  - CARDIAC FAILURE [None]
  - CARDIOVASCULAR DISORDER [None]
  - CONSTIPATION [None]
  - ELECTROCARDIOGRAM T WAVE ABNORMAL [None]
  - JAUNDICE [None]
  - PERITONITIS [None]
  - PULMONARY OEDEMA [None]
